FAERS Safety Report 7206843-3 (Version None)
Quarter: 2011Q1

REPORT INFORMATION
  Report Type: 
  Country: None (occurrence: None)
  Receive Date: 20110103
  Receipt Date: 20100318
  Transmission Date: 20110831
  Serious: Yes (Other)
  Sender: FDA-Public Use
  Company Number: US-PFIZER INC-2010040889

PATIENT
  Sex: Female

DRUGS (1)
  1. PENICILLIN G PROCAINE [Suspect]

REACTIONS (1)
  - DRUG HYPERSENSITIVITY [None]
